FAERS Safety Report 8795844 (Version 1)
Quarter: 2012Q4

REPORT INFORMATION
  Report Type: 
  Country: BR (occurrence: BR)
  Receive Date: 20120919
  Receipt Date: 20120919
  Transmission Date: 20130627
  Serious: Yes (Other)
  Sender: FDA-Public Use
  Company Number: PHHY2012BR080666

PATIENT
  Sex: Female

DRUGS (1)
  1. DIOVAN AMLO FIX [Suspect]
     Indication: HYPERTENSION
     Dosage: 1 DF (160/5 mg), QD

REACTIONS (4)
  - Pulmonary hypertension [Recovering/Resolving]
  - Cardiac valve disease [Recovering/Resolving]
  - Ear disorder [Recovering/Resolving]
  - Heart rate increased [Recovering/Resolving]
